FAERS Safety Report 9335636 (Version 1)
Quarter: 2013Q2

REPORT INFORMATION
  Report Type: Spontaneous
  Country: US (occurrence: US)
  Receive Date: 20130605
  Receipt Date: 20130605
  Transmission Date: 20140414
  Serious: Yes (Hospitalization, Other)
  Sender: FDA-Public Use
  Company Number: US-BAYER-2013-068050

PATIENT
  Sex: Female
  Weight: 68.03 kg

DRUGS (9)
  1. BETASERON [Suspect]
     Indication: RELAPSING-REMITTING MULTIPLE SCLEROSIS
  2. SIMVASTATIN [Concomitant]
  3. KLONOPIN [Concomitant]
  4. WELLBUTRIN [Concomitant]
  5. TOPIRAMATE [Concomitant]
  6. ASPIRIN [Concomitant]
  7. ACTIVELLA [Concomitant]
  8. VITAMIN D [Concomitant]
  9. PREDNISONE [Concomitant]

REACTIONS (2)
  - Depression [None]
  - Multiple sclerosis relapse [None]
